FAERS Safety Report 9529512 (Version 1)
Quarter: 2013Q2

REPORT INFORMATION
  Report Type: Spontaneous
  Country: US (occurrence: None)
  Receive Date: 20130401
  Receipt Date: 20130401
  Transmission Date: 20140414
  Serious: Yes (Disabling)
  Sender: FDA-Public Use
  Company Number: PHEH2012US003051

PATIENT
  Age: 90 Year
  Sex: Female
  Weight: 132 kg

DRUGS (1)
  1. EXELON PATCH [Suspect]
     Indication: DEMENTIA
     Route: 062

REACTIONS (1)
  - Abdominal pain [None]
